FAERS Safety Report 4356096-9 (Version None)
Quarter: 2004Q2

REPORT INFORMATION
  Report Type: 
  Country: None (occurrence: None)
  Receive Date: 20040511
  Receipt Date: 20040428
  Transmission Date: 20050107
  Serious: Yes (Other)
  Sender: FDA-Public Use
  Company Number: US-GLAXOSMITHKLINE-A0508779A

PATIENT
  Sex: Female

DRUGS (1)
  1. CEFTIN [Suspect]
     Indication: ILL-DEFINED DISORDER
     Route: 048

REACTIONS (4)
  - BRAIN CONTUSION [None]
  - CHILD ABUSE [None]
  - CONVULSION [None]
  - VOMITING [None]
